FAERS Safety Report 13747787 (Version 4)
Quarter: 2017Q4

REPORT INFORMATION
  Report Type: Spontaneous
  Country: CH (occurrence: CH)
  Receive Date: 20170713
  Receipt Date: 20171016
  Transmission Date: 20180320
  Serious: Yes (Hospitalization)
  Sender: FDA-Public Use
  Company Number: CH-UCBSA-2017027102

PATIENT
  Age: 19 Year
  Sex: Male
  Weight: 70 kg

DRUGS (7)
  1. BRIVIACT [Suspect]
     Active Substance: BRIVARACETAM
     Dosage: 100  MG PER DAY
     Route: 048
     Dates: start: 201706, end: 2017
  2. BRIVIACT [Suspect]
     Active Substance: BRIVARACETAM
     Indication: EPILEPSY
     Dosage: 25 MG, UNK
     Route: 048
     Dates: start: 20170625, end: 201706
  3. ORFIRIL [Concomitant]
     Active Substance: VALPROATE SODIUM
     Indication: EPILEPSY
     Dosage: 1050 MG, ONCE DAILY (QD)
     Route: 048
     Dates: end: 20170628
  4. BRIVIACT [Suspect]
     Active Substance: BRIVARACETAM
     Dosage: INCREASED BY 25 MG PER DAY UP TO 100 MG/DAY
     Route: 048
     Dates: start: 201706, end: 201706
  5. BRIVIACT [Suspect]
     Active Substance: BRIVARACETAM
     Dosage: 150 MG/DAY
     Route: 048
     Dates: start: 20170703, end: 20170705
  6. LAMOTRIGINE. [Concomitant]
     Active Substance: LAMOTRIGINE
     Indication: EPILEPSY
     Dosage: 500 MG, ONCE DAILY (QD)
     Route: 048
     Dates: start: 2016
  7. BRIVIACT [Suspect]
     Active Substance: BRIVARACETAM
     Dosage: 125 PER DAY
     Route: 048
     Dates: start: 2017, end: 2017

REACTIONS (1)
  - Blood creatine phosphokinase increased [Recovered/Resolved]

NARRATIVE: CASE EVENT DATE: 20170629
